FAERS Safety Report 4826177-1 (Version None)
Quarter: 2005Q4

REPORT INFORMATION
  Report Type: 
  Country: None (occurrence: None)
  Receive Date: 20051014
  Receipt Date: 20050818
  Transmission Date: 20060501
  Serious: No
  Sender: FDA-Public Use
  Company Number: 2005SP002406

PATIENT
  Age: 24 Year
  Sex: Female
  Weight: 70.7611 kg

DRUGS (2)
  1. LUNESTA [Suspect]
     Dosage: 2 MG;HS;ORAL; 3 MG;HS;ORAL
     Route: 048
     Dates: start: 20050801, end: 20050815
  2. LUNESTA [Suspect]
     Dosage: 2 MG;HS;ORAL; 3 MG;HS;ORAL
     Route: 048
     Dates: start: 20050801, end: 20050815

REACTIONS (2)
  - AMNESIA [None]
  - HALLUCINATION, AUDITORY [None]
